FAERS Safety Report 26058522 (Version 1)
Quarter: 2025Q4

REPORT INFORMATION
  Report Type: Spontaneous
  Country: EU (occurrence: EU)
  Receive Date: 20251118
  Receipt Date: 20251118
  Transmission Date: 20260117
  Serious: Yes (Other)
  Sender: REGENERON
  Company Number: EU-BAYER-2025A151252

PATIENT
  Age: 90 Year
  Sex: Female

DRUGS (1)
  1. EYLEA HD [Suspect]
     Active Substance: AFLIBERCEPT
     Indication: Product used for unknown indication
     Dosage: UNK, 114.3 MG/ML
     Dates: start: 20251023

REACTIONS (5)
  - Blindness unilateral [Recovering/Resolving]
  - Bacterial endophthalmitis [Recovering/Resolving]
  - Vitreous opacities [Recovering/Resolving]
  - Eye pain [Recovering/Resolving]
  - Eye irritation [Recovering/Resolving]

NARRATIVE: CASE EVENT DATE: 20251031
